FAERS Safety Report 7009275-6 (Version None)
Quarter: 2010Q3

REPORT INFORMATION
  Report Type: 
  Country: None (occurrence: None)
  Receive Date: 20100923
  Receipt Date: 20100914
  Transmission Date: 20110219
  Serious: Yes (Hospitalization)
  Sender: FDA-Public Use
  Company Number: US-BRISTOL-MYERS SQUIBB COMPANY-15285737

PATIENT
  Age: 62 Year
  Sex: Female
  Weight: 63 kg

DRUGS (10)
  1. PACLITAXEL [Suspect]
     Indication: NON-SMALL CELL LUNG CANCER
     Dosage: DISCONTINUED ON 27AUG10
     Route: 042
     Dates: start: 20100804, end: 20100804
  2. CARBOPLATIN [Suspect]
     Indication: NON-SMALL CELL LUNG CANCER
     Dosage: 1DF= 6 AUC; TAKEN OFF THE PROTOCOL ON 27AUG10
     Route: 042
     Dates: start: 20100804
  3. BEVACIZUMAB [Suspect]
     Indication: NON-SMALL CELL LUNG CANCER
     Dosage: TAKEN OFF THE PROTOCOL ON 27AUG10
     Dates: start: 20100804
  4. SPIRONOLACTONE [Concomitant]
     Dates: start: 20100706
  5. LASIX [Concomitant]
     Dates: start: 20100722
  6. REGLAN [Concomitant]
     Dates: start: 20100708
  7. ALBUTEROL [Concomitant]
  8. COMPAZINE [Concomitant]
     Dates: start: 20100722
  9. HYDROCODONE [Concomitant]
     Dates: start: 20100706
  10. ATIVAN [Concomitant]

REACTIONS (4)
  - HYPONATRAEMIA [None]
  - NEUTROPENIA [None]
  - OESOPHAGITIS [None]
  - THROMBOCYTOPENIA [None]
